FAERS Safety Report 5008569-3 (Version None)
Quarter: 2006Q2

REPORT INFORMATION
  Report Type: 
  Country: None (occurrence: None)
  Receive Date: 20060523
  Receipt Date: 20060516
  Transmission Date: 20061013
  Serious: Yes (Other)
  Sender: FDA-Public Use
  Company Number: PHEH2006US06419

PATIENT
  Age: 32 Year
  Sex: Female

DRUGS (7)
  1. TRILEPTAL [Suspect]
     Indication: GRAND MAL CONVULSION
     Dosage: 600 MG, TID
     Route: 048
  2. TRILEPTAL [Suspect]
     Dosage: 1500 MG, QD
     Dates: start: 20060510
  3. LAMICTAL [Concomitant]
     Dosage: 300 MG, QD
  4. FELBATOL [Suspect]
     Dosage: 1200 MG, QD
     Dates: start: 20060201
  5. FELBATOL [Suspect]
     Dosage: 1400 MG, QD
  6. FELBATOL [Suspect]
     Dosage: 1000 MG, QD
  7. FELBATOL [Suspect]
     Dosage: 1200 MG, QD
     Dates: start: 20060512

REACTIONS (12)
  - ASTHENIA [None]
  - CEREBRAL LOBOTOMY [None]
  - DIFFICULTY IN WALKING [None]
  - DIZZINESS [None]
  - DRUG INTERACTION [None]
  - DRUG LEVEL INCREASED [None]
  - DYSPHONIA [None]
  - INSOMNIA [None]
  - NAUSEA [None]
  - SOMNOLENCE [None]
  - VISION BLURRED [None]
  - VOMITING [None]
